FAERS Safety Report 6266651-7 (Version None)
Quarter: 2009Q3

REPORT INFORMATION
  Report Type: 
  Country: None (occurrence: None)
  Receive Date: 20090710
  Receipt Date: 20090701
  Transmission Date: 20100115
  Serious: Yes (Death, Hospitalization)
  Sender: FDA-Public Use
  Company Number: 2009AL000334

PATIENT
  Age: 65 Year
  Sex: Male

DRUGS (27)
  1. DIGOXIN [Suspect]
     Dosage: 0.25MG, DAILY, PO
     Route: 048
  2. SPIRONOLACTONE [Concomitant]
  3. FUROSEMIDE [Concomitant]
  4. BUMETANIDE [Concomitant]
  5. POTASSIUM CHLORIDE [Concomitant]
  6. METOLAZONE [Concomitant]
  7. LEVOTHYROXINE SODIUM [Concomitant]
  8. COUMADIN [Concomitant]
  9. PRIMIDONE [Concomitant]
  10. IRON [Concomitant]
  11. LANTUS [Concomitant]
  12. NOVOLOG [Concomitant]
  13. LOVENOX [Concomitant]
  14. RIFAXIMIN [Concomitant]
  15. VANCOMYCIN [Concomitant]
  16. CEFOTAXIME [Concomitant]
  17. ASCORBIC ACID [Concomitant]
  18. DIOVAN [Concomitant]
  19. LOPID [Concomitant]
  20. GEMFIBROZIL [Concomitant]
  21. SYNTHROID [Concomitant]
  22. K-DUR [Concomitant]
  23. ZYMAR [Concomitant]
  24. LYRICA [Concomitant]
  25. ENULOSE [Concomitant]
  26. POLYBASE [Concomitant]
  27. . [Concomitant]

REACTIONS (17)
  - ABDOMINAL PAIN [None]
  - ASCITES [None]
  - ASTHENIA [None]
  - ATRIAL FIBRILLATION [None]
  - CARDIAC FAILURE CONGESTIVE [None]
  - CARDIOACTIVE DRUG LEVEL INCREASED [None]
  - CONDITION AGGRAVATED [None]
  - EXCORIATION [None]
  - HEPATIC CIRRHOSIS [None]
  - HEPATIC FAILURE [None]
  - HEPATORENAL SYNDROME [None]
  - LETHARGY [None]
  - LEUKOCYTOSIS [None]
  - MUSCLE SPASMS [None]
  - PERITONITIS [None]
  - PYREXIA [None]
  - RENAL DISORDER [None]
